FAERS Safety Report 23788505 (Version 3)
Quarter: 2024Q2

REPORT INFORMATION
  Report Type: Spontaneous
  Country: FR (occurrence: None)
  Receive Date: 20240426
  Receipt Date: 20240618
  Transmission Date: 20240716
  Serious: Yes (Hospitalization)
  Sender: FDA-Public Use
  Company Number: 2024A097291

PATIENT
  Age: 11345 Day
  Sex: Female
  Weight: 62 kg

DRUGS (1)
  1. FASENRA [Suspect]
     Active Substance: BENRALIZUMAB
     Indication: Asthma
     Route: 058
     Dates: start: 20240417

REACTIONS (8)
  - Feeling cold [Recovered/Resolved]
  - Tremor [Recovering/Resolving]
  - Photopsia [Recovering/Resolving]
  - Oropharyngeal pain [Recovering/Resolving]
  - Asthenia [Recovering/Resolving]
  - Eye contusion [Recovering/Resolving]
  - Pyrexia [Recovering/Resolving]
  - Fall [Recovering/Resolving]

NARRATIVE: CASE EVENT DATE: 20240417
